FAERS Safety Report 10877196 (Version 2)
Quarter: 2015Q2

REPORT INFORMATION
  Report Type: Spontaneous
  Country: IT (occurrence: IT)
  Receive Date: 20150302
  Receipt Date: 20150623
  Transmission Date: 20150821
  Serious: Yes (Hospitalization)
  Sender: FDA-Public Use
  Company Number: IT-AUROBINDO-AUR-APL-2015-01635

PATIENT
  Age: 82 Year
  Sex: Male

DRUGS (3)
  1. ALPRAZOLAM. [Concomitant]
     Active Substance: ALPRAZOLAM
     Indication: PRODUCT USED FOR UNKNOWN INDICATION
     Dosage: 1 DF, UNK
     Route: 048
  2. CARDIRENE [Interacting]
     Active Substance: ASPIRIN DL-LYSINE
     Indication: CEREBROVASCULAR DISORDER
     Dosage: 160 MG, DAILY
     Route: 048
     Dates: start: 20100101, end: 20150127
  3. SERTRALINE 50MG [Suspect]
     Active Substance: SERTRALINE HYDROCHLORIDE
     Indication: PRODUCT USED FOR UNKNOWN INDICATION
     Dosage: 50 MG, DAILY
     Route: 048
     Dates: start: 20140101, end: 20150127

REACTIONS (4)
  - Asthenia [Recovered/Resolved]
  - Gastritis [Recovered/Resolved]
  - Gastrointestinal haemorrhage [Recovered/Resolved]
  - Drug interaction [Recovered/Resolved]

NARRATIVE: CASE EVENT DATE: 20150113
